FAERS Safety Report 9891745 (Version 1)
Quarter: 2014Q1

REPORT INFORMATION
  Report Type: Spontaneous
  Country: US (occurrence: US)
  Receive Date: 20140212
  Receipt Date: 20140212
  Transmission Date: 20141002
  Serious: Yes (Other)
  Sender: FDA-Public Use
  Company Number: US-B.I. PHARMACEUTICALS,INC./RIDGEFIELD-2014-BI-05407BP

PATIENT
  Sex: Female

DRUGS (11)
  1. PRADAXA [Suspect]
     Indication: ATRIAL FIBRILLATION
     Dosage: 300 MG
     Route: 048
     Dates: start: 2011, end: 2012
  2. PRADAXA [Suspect]
     Dosage: 300 MG
     Route: 048
     Dates: start: 2012
  3. MOBIC [Suspect]
     Indication: OSTEOARTHRITIS
     Dosage: 7.5 MG
     Route: 048
     Dates: start: 2009, end: 201306
  4. MOBIC [Suspect]
     Indication: RHEUMATOID ARTHRITIS
  5. SYNTHROID [Concomitant]
     Indication: HYPOTHYROIDISM
     Route: 048
  6. TRAMADOL [Concomitant]
     Indication: POLYARTHRITIS
     Route: 048
  7. METOPROLOL [Concomitant]
     Indication: HYPERTENSION
     Route: 048
  8. PREDNISONE [Concomitant]
     Indication: COLITIS
     Dosage: 4 MG
     Route: 048
  9. VENLAFAXINE [Concomitant]
     Indication: DEPRESSION
     Route: 048
  10. METHAZOLAMIDE [Concomitant]
     Indication: ESSENTIAL TREMOR
     Route: 048
  11. COUMADIN [Concomitant]

REACTIONS (2)
  - Ovarian cancer [Not Recovered/Not Resolved]
  - International normalised ratio decreased [Recovered/Resolved]
